FAERS Safety Report 9386939 (Version 3)
Quarter: 2013Q3

REPORT INFORMATION
  Report Type: Spontaneous
  Country: US (occurrence: US)
  Receive Date: 20130708
  Receipt Date: 20130814
  Transmission Date: 20140515
  Serious: Yes (Hospitalization)
  Sender: FDA-Public Use
  Company Number: US-UCBSA-090885

PATIENT
  Age: 78 Year
  Sex: Female

DRUGS (11)
  1. NEUPRO [Suspect]
     Indication: PARKINSON^S DISEASE
     Dosage: 6 MG FOR A WEEK
     Dates: start: 201208, end: 201208
  2. NEUPRO [Suspect]
     Indication: PARKINSON^S DISEASE
     Dosage: STRENGTH: 4 MG
     Dates: start: 201208, end: 201208
  3. NEUPRO [Suspect]
     Indication: PARKINSON^S DISEASE
     Dosage: 2 MG FOR A WEEK
     Dates: start: 201208, end: 201208
  4. NEUPRO [Suspect]
     Indication: PARKINSON^S DISEASE
     Dosage: 4 MG
     Dates: start: 201209, end: 201306
  5. NEUPRO [Suspect]
     Indication: PARKINSON^S DISEASE
     Dosage: IN THE MORNING
     Dates: start: 201306
  6. OXYBUTIN [Suspect]
     Indication: INCONTINENCE
     Dates: end: 2013
  7. OXYBUTIN [Suspect]
     Indication: INCONTINENCE
     Dosage: UNSPECIFIED DOSE
     Dates: start: 2013, end: 2013
  8. OXYBUTIN [Suspect]
     Indication: INCONTINENCE
     Dosage: 2.5 MG LIQUID TWICE DAILY
     Dates: start: 20130701
  9. LANOXIN [Concomitant]
     Dosage: DOSE: UNKNOWN
  10. DILITAZEM CD [Concomitant]
     Dosage: DOSE: UNKNOWN
  11. COUMADIN [Concomitant]

REACTIONS (3)
  - Urinary tract infection [Recovered/Resolved]
  - Nephrolithiasis [Not Recovered/Not Resolved]
  - Somnolence [Recovering/Resolving]
